FAERS Safety Report 6815388-1 (Version None)
Quarter: 2010Q3

REPORT INFORMATION
  Report Type: 
  Country: None (occurrence: None)
  Receive Date: 20100702
  Receipt Date: 20100701
  Transmission Date: 20110219
  Serious: Yes (Life-Threatening)
  Sender: FDA-Public Use
  Company Number: GXKR2010DE05522

PATIENT

DRUGS (1)
  1. DOXEPIN 1A PHARMA (NGX) [Suspect]
     Indication: PANIC DISORDER
     Dosage: 50 MG - 0 - 100 MG
     Route: 048
     Dates: start: 20100506, end: 20100517

REACTIONS (1)
  - ANAPHYLACTIC SHOCK [None]
